FAERS Safety Report 9357899 (Version 2)
Quarter: 2013Q3

REPORT INFORMATION
  Report Type: Spontaneous
  Country: US (occurrence: US)
  Receive Date: 20130620
  Receipt Date: 20130826
  Transmission Date: 20140515
  Serious: Yes (Death)
  Sender: FDA-Public Use
  Company Number: US-UCBSA-088752

PATIENT
  Age: 53 Year
  Sex: Male

DRUGS (3)
  1. VIMPAT [Suspect]
     Indication: CONVULSION
     Dates: start: 201305
  2. KEPPRA [Suspect]
     Dates: start: 201305
  3. DILANTIN [Concomitant]
     Dates: start: 201305

REACTIONS (2)
  - Death [Fatal]
  - Respiratory failure [Unknown]
